FAERS Safety Report 7789013-X (Version None)
Quarter: 2011Q3

REPORT INFORMATION
  Report Type: 
  Country: None (occurrence: None)
  Receive Date: 20110930
  Receipt Date: 20110928
  Transmission Date: 20111222
  Serious: Yes (Death)
  Sender: FDA-Public Use
  Company Number: PHHY2011PA86204

PATIENT
  Age: 77 Year
  Sex: Male

DRUGS (1)
  1. FORADIL [Suspect]
     Dosage: 12 UG, UNK

REACTIONS (1)
  - DEATH [None]
